FAERS Safety Report 20232568 (Version 3)
Quarter: 2022Q1

REPORT INFORMATION
  Report Type: Spontaneous
  Country: US (occurrence: US)
  Receive Date: 20211227
  Receipt Date: 20220203
  Transmission Date: 20220423
  Serious: No
  Sender: FDA-Public Use
  Company Number: US-GSKCCFUS-Case-01251584_AE-73256

PATIENT
  Sex: Female

DRUGS (1)
  1. BENLYSTA [Suspect]
     Active Substance: BELIMUMAB
     Indication: Product used for unknown indication
     Dosage: UNK

REACTIONS (5)
  - Injection site haemorrhage [Unknown]
  - Injection site bruising [Unknown]
  - Injection site reaction [Unknown]
  - Wrong technique in device usage process [Unknown]
  - Product complaint [Unknown]
